FAERS Safety Report 23176313 (Version 1)
Quarter: 2023Q4

REPORT INFORMATION
  Report Type: Report from Study
  Country: US (occurrence: US)
  Receive Date: 20231113
  Receipt Date: 20231113
  Transmission Date: 20240110
  Serious: No
  Sender: FDA-Public Use
  Company Number: US-drreddys-SPO/USA/23/0179178

PATIENT
  Age: 4 Year
  Sex: Female
  Weight: 16.798 kg

DRUGS (1)
  1. SAPROPTERIN DIHYDROCHLORIDE [Suspect]
     Active Substance: SAPROPTERIN DIHYDROCHLORIDE
     Indication: Hyperphenylalaninaemia
     Route: 048

REACTIONS (1)
  - Hypersensitivity [Unknown]
